FAERS Safety Report 11537157 (Version 1)
Quarter: 2015Q3

REPORT INFORMATION
  Report Type: Spontaneous
  Country: US (occurrence: US)
  Receive Date: 20150922
  Receipt Date: 20150922
  Transmission Date: 20151125
  Serious: Yes (Hospitalization, Other)
  Sender: FDA-Public Use
  Company Number: US-JNJFOC-20150905475

PATIENT
  Age: 53 Year
  Sex: Female

DRUGS (2)
  1. ACETAMINOPHEN. [Suspect]
     Active Substance: ACETAMINOPHEN
     Route: 065
  2. ACETAMINOPHEN. [Suspect]
     Active Substance: ACETAMINOPHEN
     Indication: PAIN
     Route: 065

REACTIONS (7)
  - Extra dose administered [Unknown]
  - Metabolic acidosis [Recovering/Resolving]
  - Dyspnoea [Unknown]
  - Pancreatitis acute [Unknown]
  - Acute kidney injury [Unknown]
  - Hypophagia [Unknown]
  - Ketosis [Unknown]
